FAERS Safety Report 9216010 (Version 3)
Quarter: 2013Q3

REPORT INFORMATION
  Report Type: Spontaneous
  Country: US (occurrence: None)
  Receive Date: 20130402
  Receipt Date: 20130927
  Transmission Date: 20140515
  Serious: Yes (Death)
  Sender: FDA-Public Use
  Company Number: 2013P1003913

PATIENT
  Age: 55 Year
  Sex: Male
  Weight: 64.86 kg

DRUGS (6)
  1. INFUMORPH [Suspect]
     Indication: PAIN
     Route: 037
     Dates: start: 20121217, end: 20121218
  2. INFUMORPH [Suspect]
     Indication: POST LAMINECTOMY SYNDROME
     Route: 037
     Dates: start: 20121217, end: 20121218
  3. INFUMORPH [Suspect]
     Indication: SPINAL PAIN
     Route: 037
     Dates: start: 20121217, end: 20121218
  4. FENTANYL PATCH [Suspect]
  5. OXYCODONE [Suspect]
  6. TEMAZEPAM [Suspect]

REACTIONS (4)
  - Drug administration error [None]
  - Overdose [None]
  - Toxicologic test abnormal [None]
  - Post procedural complication [None]
